FAERS Safety Report 10368455 (Version 1)
Quarter: 2014Q3

REPORT INFORMATION
  Report Type: Spontaneous
  Country: CH (occurrence: CH)
  Receive Date: 20140807
  Receipt Date: 20140807
  Transmission Date: 20150326
  Serious: Yes (Hospitalization)
  Sender: FDA-Public Use
  Company Number: CH-BRISTOL-MYERS SQUIBB COMPANY-21239157

PATIENT
  Age: 73 Year
  Sex: Male
  Weight: 85 kg

DRUGS (3)
  1. YERVOY [Suspect]
     Active Substance: IPILIMUMAB
     Indication: METASTATIC MALIGNANT MELANOMA
     Route: 041
     Dates: start: 20140612
  2. IMODIUM [Concomitant]
     Active Substance: LOPERAMIDE HYDROCHLORIDE
  3. DAFALGAN [Concomitant]
     Active Substance: ACETAMINOPHEN

REACTIONS (9)
  - Diarrhoea [Recovered/Resolved]
  - Rhabdomyolysis [Recovered/Resolved]
  - Hypotension [Recovered/Resolved]
  - Confusional state [Unknown]
  - Hypoalbuminaemia [Not Recovered/Not Resolved]
  - Rash maculo-papular [Recovered/Resolved]
  - Hyponatraemia [Not Recovered/Not Resolved]
  - Systemic inflammatory response syndrome [Not Recovered/Not Resolved]
  - Hepatitis [Not Recovered/Not Resolved]

NARRATIVE: CASE EVENT DATE: 201406
